FAERS Safety Report 8993549 (Version 4)
Quarter: 2014Q3

REPORT INFORMATION
  Report Type: Spontaneous
  Country: US (occurrence: US)
  Receive Date: 20130102
  Receipt Date: 20140718
  Transmission Date: 20150326
  Serious: Yes (Hospitalization, Disabling, Other)
  Sender: FDA-Public Use
  Company Number: US-009507513-1301USA000384

PATIENT
  Sex: Female
  Weight: 95.24 kg

DRUGS (1)
  1. NUVARING [Suspect]
     Active Substance: ETHINYL ESTRADIOL\ETONOGESTREL
     Indication: CONTRACEPTION
     Dosage: UNK
     Route: 067
     Dates: start: 20100726, end: 20110120

REACTIONS (11)
  - Renal embolism [Unknown]
  - Heart injury [Unknown]
  - Arthritis [Unknown]
  - Toe operation [Unknown]
  - Limb injury [Unknown]
  - Knee operation [Unknown]
  - Pulmonary embolism [Unknown]
  - Vitamin D deficiency [Unknown]
  - Panic attack [Unknown]
  - Joint injury [Unknown]
  - Influenza [Unknown]

NARRATIVE: CASE EVENT DATE: 201101
